FAERS Safety Report 10402619 (Version 1)
Quarter: 2014Q3

REPORT INFORMATION
  Report Type: Spontaneous
  Country: US (occurrence: US)
  Receive Date: 20140822
  Receipt Date: 20140822
  Transmission Date: 20150326
  Serious: No
  Sender: FDA-Public Use
  Company Number: US-009507513-1408USA012968

PATIENT
  Age: 78 Year
  Sex: Female

DRUGS (1)
  1. JANUVIA [Suspect]
     Active Substance: SITAGLIPTIN PHOSPHATE
     Indication: BLOOD GLUCOSE ABNORMAL
     Dosage: 100 MG, QD
     Route: 048
     Dates: start: 2013, end: 20140807

REACTIONS (3)
  - Pollakiuria [Unknown]
  - Blood glucose decreased [Unknown]
  - Pruritus [Unknown]

NARRATIVE: CASE EVENT DATE: 201403
